FAERS Safety Report 8013103-X (Version None)
Quarter: 2011Q4

REPORT INFORMATION
  Report Type: 
  Country: None (occurrence: None)
  Receive Date: 20111229
  Receipt Date: 20111221
  Transmission Date: 20120403
  Serious: Yes (Hospitalization)
  Sender: FDA-Public Use
  Company Number: CH-PFIZER INC-2011314184

PATIENT
  Age: 53 Year
  Sex: Female
  Weight: 60 kg

DRUGS (17)
  1. PANTOPRAZOLE SODIUM [Suspect]
     Dosage: 40 MG, 1X/DAY
     Route: 048
     Dates: start: 20081119
  2. PHENYTOIN [Suspect]
     Dosage: 150 MG, 3X/DAY
     Route: 048
     Dates: start: 20110621, end: 20110901
  3. PHENYTOIN [Suspect]
     Dosage: 350 MG
     Route: 048
     Dates: start: 20110901
  4. ACETAMINOPHEN [Concomitant]
     Dosage: 1 MG, 4X/DAY
     Route: 048
     Dates: start: 20081119
  5. DUPHALAC [Concomitant]
     Dosage: 10 ML, AS REQUIRED
     Route: 048
     Dates: start: 20110110
  6. LORAZEPAM [Concomitant]
     Dosage: 1 MG, AS REQUIRED
     Route: 048
     Dates: start: 20081119
  7. DOMPERIDONE [Concomitant]
     Dosage: 10 MG, AS REQUIRED
     Route: 048
     Dates: start: 20100312
  8. KEPPRA [Concomitant]
     Dosage: 500 MG, 3X/DAY
     Route: 048
     Dates: start: 20110621
  9. LEKOVIT CA [Concomitant]
     Dosage: 1 DF, 2X/DAY
     Route: 048
     Dates: start: 20110621
  10. MOVIPREP [Concomitant]
     Dosage: 20 MG, 1X/DAY
     Route: 048
     Dates: start: 20110719
  11. DALMADORM ^ROCHE^ [Concomitant]
     Dosage: 30 MG, 1X/DAY
     Route: 048
     Dates: start: 20081119
  12. RISPERDAL [Concomitant]
     Dosage: 37.5 MG, EVERY 3 WEEKS
     Route: 048
     Dates: start: 20081119
  13. PRONTOLAX [Concomitant]
     Dosage: 5 MG, 1X/DAY
     Route: 048
     Dates: start: 20081119
  14. BACTROBAN [Concomitant]
     Dosage: 1 DF, 2X/DAY
     Route: 061
     Dates: start: 20100906
  15. PHENYTOIN [Suspect]
     Indication: EPILEPSY
     Dosage: UNK
     Route: 048
     Dates: start: 20081101, end: 20110620
  16. CLORAZEPATE DIPOTASSIUM [Concomitant]
     Dosage: 5 MG, 2X/DAY
     Route: 048
     Dates: start: 20100212
  17. OLFEN [Concomitant]
     Dosage: 75 MG, AS REQUIRED
     Route: 048
     Dates: start: 20100909

REACTIONS (4)
  - FRACTURE [None]
  - FALL [None]
  - ACCIDENTAL OVERDOSE [None]
  - CEREBELLAR ATAXIA [None]
